FAERS Safety Report 5922222-0 (Version None)
Quarter: 2008Q4

REPORT INFORMATION
  Report Type: 
  Country: None (occurrence: None)
  Receive Date: 20081017
  Receipt Date: 20081010
  Transmission Date: 20090506
  Serious: No
  Sender: FDA-Public Use
  Company Number: ZA-EISAI MEDIAL RESEARCH-E3810-02249-SPO-ZA

PATIENT
  Age: 39 Year
  Sex: Male

DRUGS (1)
  1. RABEPRAZOLE SODIUM [Suspect]
     Route: 048

REACTIONS (1)
  - PANCREATIC CARCINOMA [None]
